FAERS Safety Report 20112246 (Version 1)
Quarter: 2021Q4

REPORT INFORMATION
  Report Type: Report from Study
  Country: EG (occurrence: EG)
  Receive Date: 20211125
  Receipt Date: 20211125
  Transmission Date: 20220303
  Serious: Yes (Hospitalization, Other)
  Sender: FDA-Public Use
  Company Number: EG-ABBVIE-21K-048-4175638-00

PATIENT
  Age: 75 Year
  Sex: Male

DRUGS (7)
  1. VENCLEXTA [Suspect]
     Active Substance: VENETOCLAX
     Indication: Acute myeloid leukaemia
     Dosage: EVERY TUESDAY, WEDNESDAY AND THURSDAY OF EACH WEEK TAKE 200MG
     Route: 048
     Dates: start: 202004, end: 202110
  2. VENCLEXTA [Suspect]
     Active Substance: VENETOCLAX
     Dosage: EVERY TUESDAY, WEDNESDAY AND THURSDAY OF EACH WEEK TAKE 200MG
     Route: 048
     Dates: start: 2021, end: 202111
  3. GLIMEPIRIDE\METFORMIN [Concomitant]
     Active Substance: GLIMEPIRIDE\METFORMIN
     Indication: Diabetes mellitus
     Dates: start: 2000
  4. BISOPROLOL FUMARATE\HYDROCHLOROTHIAZIDE [Concomitant]
     Active Substance: BISOPROLOL FUMARATE\HYDROCHLOROTHIAZIDE
     Indication: Hypertension
     Dates: start: 1980
  5. FLOPADEX [Concomitant]
     Indication: Prostatic disorder
  6. ALPHAGAN P [Concomitant]
     Active Substance: BRIMONIDINE TARTRATE
     Indication: Glaucoma
     Dates: start: 1995
  7. COSOPT [Concomitant]
     Active Substance: DORZOLAMIDE HYDROCHLORIDE\TIMOLOL MALEATE
     Indication: Glaucoma
     Dates: start: 1995

REACTIONS (3)
  - Haemoglobin decreased [Unknown]
  - Biopsy bone marrow abnormal [Unknown]
  - Incorrect dose administered [Not Recovered/Not Resolved]

NARRATIVE: CASE EVENT DATE: 20210401
